FAERS Safety Report 8173251-0 (Version None)
Quarter: 2012Q1

REPORT INFORMATION
  Report Type: 
  Country: None (occurrence: None)
  Receive Date: 20120223
  Receipt Date: 20120209
  Transmission Date: 20120608
  Serious: Yes (Death, Life-Threatening, Hospitalization, Other)
  Sender: FDA-Public Use
  Company Number: 2009AL000112

PATIENT
  Age: 75 Year
  Sex: Male

DRUGS (12)
  1. GLYBURIDE [Concomitant]
  2. IRON [Concomitant]
  3. VITAMIN B-12 [Concomitant]
  4. DIGOXIN [Suspect]
     Dosage: ;   ;PO
     Route: 048
  5. HYZAAR [Concomitant]
  6. NEXIUM [Concomitant]
  7. VITAMIN B COMPLEX CAP [Concomitant]
  8. VICODIN [Concomitant]
  9. DEBROX [Concomitant]
  10. MIRAPEX [Concomitant]
  11. METFORMIN HCL [Concomitant]
  12. AMBIEN [Concomitant]

REACTIONS (26)
  - SOCIAL AVOIDANT BEHAVIOUR [None]
  - MULTIPLE INJURIES [None]
  - CHRONIC OBSTRUCTIVE PULMONARY DISEASE [None]
  - ASTHENIA [None]
  - DRY SKIN [None]
  - DIZZINESS [None]
  - ATRIAL FIBRILLATION [None]
  - BACK PAIN [None]
  - INSOMNIA [None]
  - PAIN [None]
  - IMPAIRED WORK ABILITY [None]
  - EMOTIONAL DISORDER [None]
  - CARDIAC ARREST [None]
  - CERUMEN IMPACTION [None]
  - HYPERSOMNIA [None]
  - PROSTATIC SPECIFIC ANTIGEN INCREASED [None]
  - ECONOMIC PROBLEM [None]
  - GASTROOESOPHAGEAL REFLUX DISEASE [None]
  - DIABETES MELLITUS INADEQUATE CONTROL [None]
  - RESTLESS LEGS SYNDROME [None]
  - ANAEMIA [None]
  - INJURY [None]
  - CORONARY ARTERY DISEASE [None]
  - PNEUMONIA [None]
  - RENAL FAILURE CHRONIC [None]
  - BLOOD PRESSURE INCREASED [None]
